FAERS Safety Report 10653067 (Version 1)
Quarter: 2014Q4

REPORT INFORMATION
  Report Type: Spontaneous
  Country: JP (occurrence: JP)
  Receive Date: 20141215
  Receipt Date: 20141215
  Transmission Date: 20150529
  Serious: Yes (Death, Other)
  Sender: FDA-Public Use
  Company Number: PHHY2014JP159293

PATIENT
  Age: 53 Year
  Sex: Female

DRUGS (1)
  1. ZOMETA [Suspect]
     Active Substance: ZOLEDRONIC ACID
     Indication: BREAST CANCER
     Route: 042

REACTIONS (6)
  - Breast cancer [Fatal]
  - Pain in jaw [Unknown]
  - Osteonecrosis of jaw [Not Recovered/Not Resolved]
  - Infection [Unknown]
  - Exposed bone in jaw [Not Recovered/Not Resolved]
  - Malignant neoplasm progression [Fatal]
